FAERS Safety Report 16820936 (Version 1)
Quarter: 2019Q3

REPORT INFORMATION
  Report Type: Other
  Country: CN (occurrence: CN)
  Receive Date: 20190918
  Receipt Date: 20190918
  Transmission Date: 20191005
  Serious: Yes (Life-Threatening)
  Sender: FDA-Public Use
  Company Number: CN-JIANGSU HENGRUI MEDICINE CO., LTD.-2074570

PATIENT
  Age: 31 Year
  Sex: Male
  Weight: 80 kg

DRUGS (4)
  1. SUFENTANIL CITRATE INJECTION [Suspect]
     Active Substance: SUFENTANIL CITRATE
     Route: 040
     Dates: start: 20190807, end: 20190807
  2. SEVOFLURANE FOR INHALATION [Suspect]
     Active Substance: SEVOFLURANE
     Route: 055
     Dates: start: 20190807, end: 20190807
  3. CISATRACURIUM BESYLATE INJECTION USP, 10 MG/5 ML (2 MG/ML) AND 200 MG/ [Suspect]
     Active Substance: CISATRACURIUM BESYLATE
     Indication: HYPOTONIA
     Route: 040
     Dates: start: 20190807, end: 20190807
  4. PROPOFOL INJECTION [Suspect]
     Active Substance: PROPOFOL
     Route: 041
     Dates: start: 20190807, end: 20190807

REACTIONS (1)
  - Anaphylactic shock [Recovering/Resolving]

NARRATIVE: CASE EVENT DATE: 20190807
